FAERS Safety Report 5397566-4 (Version None)
Quarter: 2007Q3

REPORT INFORMATION
  Report Type: 
  Country: None (occurrence: None)
  Receive Date: 20070726
  Receipt Date: 20070717
  Transmission Date: 20080115
  Serious: Yes (Other)
  Sender: FDA-Public Use
  Company Number: CH-ROCHE-507650

PATIENT
  Age: 73 Year
  Sex: Female

DRUGS (2)
  1. XENICAL [Suspect]
     Indication: LAXATIVE SUPPORTIVE CARE
     Route: 048
     Dates: start: 20050101
  2. VOLTAREN [Suspect]
     Indication: DRUG USE FOR UNKNOWN INDICATION
     Route: 048

REACTIONS (1)
  - GASTRIC ULCER [None]
